FAERS Safety Report 9612615 (Version 2)
Quarter: 2014Q3

REPORT INFORMATION
  Report Type: Spontaneous
  Country: US (occurrence: None)
  Receive Date: 20131008
  Receipt Date: 20140919
  Transmission Date: 20150326
  Serious: Yes (Hospitalization)
  Sender: FDA-Public Use
  Company Number: VAL_02758_2013

PATIENT
  Age: 59 Year
  Sex: Female

DRUGS (8)
  1. MAGNESIUM [Concomitant]
     Active Substance: MAGNESIUM
  2. HERBAL NOS [Concomitant]
     Active Substance: HERBALS
  3. COZAAR [Suspect]
     Active Substance: LOSARTAN POTASSIUM
     Indication: PRODUCT USED FOR UNKNOWN INDICATION
     Dosage: (DF)
  4. MULTIVITAMINS [Concomitant]
     Active Substance: VITAMINS
  5. METOPROLOL [Suspect]
     Active Substance: METOPROLOL
     Indication: PRODUCT USED FOR UNKNOWN INDICATION
     Dosage: (100 MG BID)
  6. CALCIUM [Concomitant]
     Active Substance: CALCIUM
  7. DIOVAN [Suspect]
     Active Substance: VALSARTAN
     Indication: PRODUCT USED FOR UNKNOWN INDICATION
     Dosage: (160 MG BID)
  8. CLONIDINE. [Concomitant]
     Active Substance: CLONIDINE

REACTIONS (3)
  - Drug ineffective [None]
  - Atrial fibrillation [None]
  - Weight decreased [None]

NARRATIVE: CASE EVENT DATE: 20130607
